FAERS Safety Report 8806550 (Version 1)
Quarter: 2012Q4

REPORT INFORMATION
  Report Type: Report from Study
  Country: US (occurrence: US)
  Receive Date: 20120925
  Receipt Date: 20120925
  Transmission Date: 20130627
  Serious: Yes (Other)
  Sender: FDA-Public Use
  Company Number: US-JNJFOC-20120908348

PATIENT
  Sex: Female

DRUGS (1)
  1. REMICADE [Suspect]
     Indication: COLITIS ULCERATIVE
     Dosage: duration= 8 months
     Route: 042

REACTIONS (3)
  - Diarrhoea haemorrhagic [Unknown]
  - Drug ineffective [Unknown]
  - Malaise [Unknown]
